FAERS Safety Report 7822661-7 (Version None)
Quarter: 2011Q4

REPORT INFORMATION
  Report Type: 
  Country: None (occurrence: None)
  Receive Date: 20111018
  Receipt Date: 20111012
  Transmission Date: 20120403
  Serious: Yes (Hospitalization)
  Sender: FDA-Public Use
  Company Number: FR-ALLERGAN-1113503US

PATIENT
  Age: 71 Year
  Sex: Male

DRUGS (12)
  1. SOTALOL HCL [Concomitant]
  2. SPIRIVA [Concomitant]
  3. TANAKAN [Concomitant]
  4. PHENOBARBITAL TAB [Concomitant]
  5. DI-HYDAN [Concomitant]
  6. BENOXINATE HYDROCHLORIDE [Concomitant]
  7. BETADINE [Concomitant]
  8. AZYTER [Concomitant]
  9. LODINE [Concomitant]
  10. OZURDEX [Suspect]
     Indication: RETINAL VEIN OCCLUSION
     Dosage: UNK
     Route: 031
     Dates: start: 20110909, end: 20110909
  11. TEGRETOL [Concomitant]
  12. METHOCARBAMOL [Concomitant]

REACTIONS (1)
  - ENDOPHTHALMITIS [None]
